FAERS Safety Report 8667551 (Version 4)
Quarter: 2013Q3

REPORT INFORMATION
  Report Type: Report from Study
  Country: JP (occurrence: JP)
  Receive Date: 20120717
  Receipt Date: 20130723
  Transmission Date: 20140515
  Serious: Yes (Other)
  Sender: FDA-Public Use
  Company Number: JP-MSD-1207JPN001811

PATIENT
  Age: 53 Year
  Sex: Male
  Weight: 84 kg

DRUGS (8)
  1. PEGINTRON [Suspect]
     Indication: CHRONIC HEPATITIS C
     Dosage: 1.5 MICROGRAM PER KILOGRAM, QW
     Route: 058
     Dates: start: 20120509, end: 20121017
  2. REBETOL [Suspect]
     Indication: CHRONIC HEPATITIS C
     Dosage: 1000 MG, QD
     Route: 048
     Dates: start: 20120509, end: 20120619
  3. REBETOL [Suspect]
     Dosage: 800 MG, QD
     Route: 048
     Dates: start: 20120620, end: 20121024
  4. TELAVIC [Suspect]
     Indication: CHRONIC HEPATITIS C
     Dosage: 2250 MG, QD
     Route: 048
     Dates: start: 20120509, end: 20120619
  5. TELAVIC [Suspect]
     Dosage: 1500 MG, QD
     Route: 048
     Dates: start: 20120620, end: 20120706
  6. TELAVIC [Suspect]
     Dosage: 750 MG, QD
     Route: 048
     Dates: start: 20120711, end: 20120712
  7. OKIMINAS [Suspect]
     Indication: PYREXIA
     Dosage: 60 MG, QD
     Route: 048
     Dates: start: 20120509, end: 20121024
  8. OMERAP [Concomitant]
     Dosage: 10 MG, QD
     Route: 048

REACTIONS (3)
  - Ulcer haemorrhage [Recovered/Resolved]
  - Ileal ulcer [Recovered/Resolved]
  - Hyperuricaemia [None]
